FAERS Safety Report 7808690 (Version 4)
Quarter: 2014Q2

REPORT INFORMATION
  Report Type: Report from Study
  Country: DE (occurrence: DE)
  Receive Date: 20110211
  Receipt Date: 20140519
  Transmission Date: 20141212
  Serious: Yes (Hospitalization, Other)
  Sender: FDA-Public Use
  Company Number: DE-JNJFOC-20110200766

PATIENT
  Age: 74 Year
  Sex: Female

DRUGS (4)
  1. INFLIXIMAB [Suspect]
     Indication: RHEUMATOID ARTHRITIS
     Dosage: 3 DOSES
     Route: 042
     Dates: start: 201002, end: 20130218
  2. MTX [Suspect]
     Indication: RHEUMATOID ARTHRITIS
     Dosage: 10-20 MG
     Route: 065
     Dates: start: 200703
  3. MARCUMAR [Concomitant]
     Dates: start: 2002, end: 20110320
  4. CLEXANE [Concomitant]
     Dates: start: 20110320

REACTIONS (8)
  - Cerebrovascular accident [Unknown]
  - Facial paresis [Unknown]
  - Type 2 diabetes mellitus [Unknown]
  - Aphthous stomatitis [Unknown]
  - Catheter site infection [Unknown]
  - Gastroenteritis norovirus [Unknown]
  - Post stroke depression [Unknown]
  - Foot operation [Unknown]
